FAERS Safety Report 4269107-6 (Version None)
Quarter: 2004Q1

REPORT INFORMATION
  Report Type: 
  Country: None (occurrence: None)
  Receive Date: 20040109
  Receipt Date: 20031226
  Transmission Date: 20041129
  Serious: Yes (Life-Threatening, Hospitalization)
  Sender: FDA-Public Use
  Company Number: 02100-JPN-03-0288

PATIENT
  Age: 93 Year
  Sex: Female

DRUGS (11)
  1. CILOSTAZOL [Suspect]
     Dosage: 100 MG
     Route: 048
     Dates: start: 20030101, end: 20030707
  2. AMLODIPINE BESYLATE [Concomitant]
  3. BENZYLHYDROCHLOROTHIAZIDE [Concomitant]
  4. VALPROATE SODIUM [Concomitant]
  5. ALUMINUM HYDROXIDE MAGNESIUM HYDROXIDE [Concomitant]
  6. LANSOPRAZOLE [Concomitant]
  7. PRAVASTATIN SODIUM [Concomitant]
  8. BETAMETHASONE VALERATE GENTAMYCIN SULFATE [Concomitant]
  9. ISOSORBIDE DINITRATE [Concomitant]
  10. FUROSEMIDE [Concomitant]
  11. CANDESARTAN CILEXETIL [Concomitant]

REACTIONS (5)
  - LOSS OF CONSCIOUSNESS [None]
  - MYOCARDIAL INFARCTION [None]
  - PARTIAL SEIZURES [None]
  - RENAL IMPAIRMENT [None]
  - SUBDURAL HAEMATOMA [None]
